FAERS Safety Report 9349483 (Version 2)
Quarter: 2013Q4

REPORT INFORMATION
  Report Type: Spontaneous
  Country: DK (occurrence: DK)
  Receive Date: 20130614
  Receipt Date: 20131212
  Transmission Date: 20140711
  Serious: Yes (Death, Life-Threatening)
  Sender: FDA-Public Use
  Company Number: DK-B.I. PHARMACEUTICALS,INC./RIDGEFIELD-2013-SW-00311DB

PATIENT
  Age: 83 Year
  Sex: Male
  Weight: 70 kg

DRUGS (6)
  1. PRADAXA [Suspect]
     Indication: ATRIAL FIBRILLATION
     Dosage: 220 MG
     Route: 048
     Dates: start: 20111101, end: 20130529
  2. CARDOPAX RETARD [Concomitant]
     Indication: HYPERTENSION
  3. CRESTOR [Concomitant]
     Indication: HYPERCHOLESTEROLAEMIA
  4. OMEPRAZOL [Concomitant]
     Indication: ADVERSE DRUG REACTION
  5. OMEPRAZOL [Concomitant]
     Indication: GASTRIC PH DECREASED
  6. TRANDOLAPRIL [Concomitant]
     Indication: HYPERTENSION

REACTIONS (2)
  - Cerebral haemorrhage [Fatal]
  - Hemiparesis [Fatal]
